FAERS Safety Report 6486903-5 (Version None)
Quarter: 2009Q4

REPORT INFORMATION
  Report Type: 
  Country: None (occurrence: None)
  Receive Date: 20091210
  Receipt Date: 20091204
  Transmission Date: 20100525
  Serious: Yes (Hospitalization)
  Sender: FDA-Public Use
  Company Number: FR-BAYER-200941786GPV

PATIENT
  Age: 77 Year
  Sex: Male
  Weight: 68 kg

DRUGS (5)
  1. SORAFENIB [Suspect]
     Indication: HEPATIC NEOPLASM MALIGNANT
     Dosage: TOTAL DAILY DOSE: 400 MG
     Route: 048
     Dates: start: 20090409, end: 20091124
  2. COVERSYL [Concomitant]
     Indication: HYPERTENSION
     Dates: start: 20090611
  3. IMODIUM [Concomitant]
     Indication: DIARRHOEA
     Dates: start: 20090601
  4. ALUMINUM HYDROXIDE AND MAGNESIUM TRISILICATE [Concomitant]
     Indication: DIARRHOEA
     Dosage: TOTAL DAILY DOSE: 9 G
     Dates: start: 20091021
  5. IMPORTAL [Concomitant]
     Indication: HEPATIC ENCEPHALOPATHY PROPHYLAXIS
     Dates: start: 20091118

REACTIONS (5)
  - ASTHENIA [None]
  - DIARRHOEA [None]
  - DISORIENTATION [None]
  - GENERAL PHYSICAL HEALTH DETERIORATION [None]
  - TREMOR [None]
